FAERS Safety Report 14305171 (Version 2)
Quarter: 2018Q1

REPORT INFORMATION
  Report Type: Spontaneous
  Country: FR (occurrence: FR)
  Receive Date: 20171219
  Receipt Date: 20180216
  Transmission Date: 20180509
  Serious: Yes (Hospitalization, Other)
  Sender: FDA-Public Use
  Company Number: FR-OTSUKA-16412470

PATIENT
  Age: 68 Year
  Sex: Male

DRUGS (3)
  1. ABILIFY [Suspect]
     Active Substance: ARIPIPRAZOLE
     Indication: MANIA
     Dosage: 5 MG, UNK
     Route: 065
     Dates: start: 201106, end: 201110
  2. SERESTA [Suspect]
     Active Substance: OXAZEPAM
     Indication: MANIA
     Dosage: 10 MG, QD
     Route: 048
     Dates: start: 201106
  3. PAROXETINE HCL [Suspect]
     Active Substance: PAROXETINE HYDROCHLORIDE
     Indication: MANIA
     Dosage: 20 MG, QD
     Route: 048
     Dates: start: 201106

REACTIONS (2)
  - Pulmonary embolism [Recovered/Resolved]
  - Haematuria [Unknown]

NARRATIVE: CASE EVENT DATE: 20111025
